FAERS Safety Report 25821544 (Version 1)
Quarter: 2025Q3

REPORT INFORMATION
  Report Type: Spontaneous
  Country: EU (occurrence: EU)
  Receive Date: 20250919
  Receipt Date: 20250919
  Transmission Date: 20251021
  Serious: Yes (Other)
  Sender: TEVA
  Company Number: None

PATIENT
  Age: 27 Year
  Sex: Female

DRUGS (1)
  1. COPAXONE [Suspect]
     Active Substance: GLATIRAMER ACETATE
     Indication: Product used for unknown indication
     Route: 058
     Dates: start: 202403, end: 202508

REACTIONS (3)
  - Erythema [Unknown]
  - Suffocation feeling [Unknown]
  - Swelling [Unknown]

NARRATIVE: CASE EVENT DATE: 20250801
